FAERS Safety Report 5329830-9 (Version None)
Quarter: 2007Q2

REPORT INFORMATION
  Report Type: 
  Country: None (occurrence: None)
  Receive Date: 20070517
  Receipt Date: 20070517
  Transmission Date: 20071010
  Serious: Yes (Other)
  Sender: FDA-Public Use
  Company Number: None

PATIENT
  Sex: Female

DRUGS (1)
  1. PERCOCET [Suspect]
     Indication: KNEE ARTHROPLASTY
     Dosage: 7.5/325 1-2 TABS PO Q4
     Route: 048

REACTIONS (1)
  - DRUG INEFFECTIVE [None]
